FAERS Safety Report 8518558-X (Version None)
Quarter: 2012Q3

REPORT INFORMATION
  Report Type: 
  Country: None (occurrence: None)
  Receive Date: 20120718
  Receipt Date: 20120516
  Transmission Date: 20120928
  Serious: No
  Sender: FDA-Public Use
  Company Number: US-BRISTOL-MYERS SQUIBB COMPANY-16598559

PATIENT
  Age: 70 Year
  Sex: Female
  Weight: 73 kg

DRUGS (3)
  1. COUMADIN [Suspect]
     Indication: ATRIAL FIBRILLATION
  2. ASPIRIN [Concomitant]
     Dosage: RESTARTED ON 18FEB2012.
  3. PLAVIX [Concomitant]

REACTIONS (2)
  - PRURITUS [None]
  - PRODUCT QUALITY ISSUE [None]
